FAERS Safety Report 17555418 (Version 1)
Quarter: 2020Q1

REPORT INFORMATION
  Report Type: Spontaneous
  Country: US (occurrence: US)
  Receive Date: 20200310
  Receipt Date: 20200310
  Transmission Date: 20200409
  Serious: No
  Sender: FDA-Public Use
  Company Number: None

PATIENT
  Sex: Female

DRUGS (1)
  1. HUMIRA [Suspect]
     Active Substance: ADALIMUMAB
     Indication: RHEUMATOID ARTHRITIS
     Dosage: ?          OTHER ROUTE:INJECTION?
     Dates: start: 20191227

REACTIONS (4)
  - Injection site urticaria [None]
  - Urticaria [None]
  - Injection site mass [None]
  - Injection site pain [None]
